FAERS Safety Report 13656810 (Version 1)
Quarter: 2017Q2

REPORT INFORMATION
  Report Type: Spontaneous
  Country: ES (occurrence: ES)
  Receive Date: 20170615
  Receipt Date: 20170615
  Transmission Date: 20170830
  Serious: No
  Sender: FDA-Public Use
  Company Number: ES-ALLERGAN-1706493US

PATIENT
  Age: 70 Year
  Sex: Female

DRUGS (1)
  1. KENTERA 3.9MG/24 HOURS TRANSDERMAL PATCH [Suspect]
     Active Substance: OXYBUTYNIN
     Indication: PRODUCT USED FOR UNKNOWN INDICATION
     Dosage: 3.9 MG, UNK
     Route: 062

REACTIONS (2)
  - Rash [Not Recovered/Not Resolved]
  - Burning sensation [Not Recovered/Not Resolved]
